FAERS Safety Report 8484742-7 (Version None)
Quarter: 2012Q3

REPORT INFORMATION
  Report Type: 
  Country: None (occurrence: None)
  Receive Date: 20120703
  Receipt Date: 20120604
  Transmission Date: 20120928
  Serious: No
  Sender: FDA-Public Use
  Company Number: US-TEVA-341523USA

PATIENT
  Sex: Female

DRUGS (5)
  1. CITALOPRAM HYDROBROMIDE [Concomitant]
     Indication: PREMENSTRUAL SYNDROME
     Route: 048
  2. RABEPRAZOLE SODIUM [Concomitant]
     Indication: ULCER
     Route: 048
  3. NUVIGIL [Suspect]
     Indication: NARCOLEPSY
     Dosage: 250 MILLIGRAM;
     Route: 048
  4. LEVOTHYROXINE SODIUM [Concomitant]
     Indication: HYPOTHYROIDISM
     Dosage: 75 MICROGRAM;
     Route: 048
  5. SODIUM OXYBATE [Concomitant]
     Indication: NARCOLEPSY
     Route: 048
     Dates: start: 20120301

REACTIONS (2)
  - DRUG INEFFECTIVE [None]
  - SOMNOLENCE [None]
